FAERS Safety Report 4963802-9 (Version None)
Quarter: 2006Q1

REPORT INFORMATION
  Report Type: 
  Country: None (occurrence: None)
  Receive Date: 20060330
  Receipt Date: 20060317
  Transmission Date: 20060701
  Serious: Yes (Hospitalization)
  Sender: FDA-Public Use
  Company Number: THYR-10292

PATIENT
  Age: 57 Year
  Sex: Male

DRUGS (1)
  1. THYROGEN [Suspect]
     Indication: DIAGNOSTIC PROCEDURE
     Dosage: 0.9 MG ONCE IM
     Route: 030
     Dates: start: 20060213, end: 20060214

REACTIONS (4)
  - ASTHENIA [None]
  - BACK PAIN [None]
  - NEOPLASM SWELLING [None]
  - PARAPARESIS [None]
